FAERS Safety Report 20745105 (Version 1)
Quarter: 2022Q2

REPORT INFORMATION
  Report Type: Spontaneous
  Country: IE (occurrence: IE)
  Receive Date: 20220425
  Receipt Date: 20220425
  Transmission Date: 20220720
  Serious: Yes (Hospitalization)
  Sender: FDA-Public Use
  Company Number: IE-ADMA BIOLOGICS INC.-IE-2022ADM000016

PATIENT
  Age: 43 Year
  Sex: Female

DRUGS (1)
  1. HUMAN IMMUNOGLOBULIN G [Suspect]
     Active Substance: HUMAN IMMUNOGLOBULIN G
     Indication: Peripheral sensory neuropathy
     Dosage: 400 MG/KG DAILY FOR 5 DAYS

REACTIONS (1)
  - Dyshidrotic eczema [Recovered/Resolved]
